FAERS Safety Report 17339453 (Version 1)
Quarter: 2020Q1

REPORT INFORMATION
  Report Type: Spontaneous
  Country: US (occurrence: US)
  Receive Date: 20200129
  Receipt Date: 20200129
  Transmission Date: 20200409
  Serious: No
  Sender: FDA-Public Use
  Company Number: US-009507513-2001USA009588

PATIENT
  Age: 84 Year
  Sex: Female

DRUGS (12)
  1. CEFTRIAXONE. [Suspect]
     Active Substance: CEFTRIAXONE
     Indication: STAPHYLOCOCCAL SEPSIS
  2. DEXTROSE (+) POTASSIUM CHLORIDE [Concomitant]
     Dosage: 5% DEXTROSE INJECTION WITH POTASSIUM CHLORIDE
     Route: 042
  3. CUBICIN [Suspect]
     Active Substance: DAPTOMYCIN
     Indication: STAPHYLOCOCCAL SEPSIS
     Dosage: UNK
  4. GENTAMICIN. [Suspect]
     Active Substance: GENTAMICIN
     Indication: STAPHYLOCOCCAL SEPSIS
     Dosage: UNK
  5. MORPHINE SULFATE. [Concomitant]
     Active Substance: MORPHINE SULFATE
     Dosage: TWO DOSES OF 2 MG SEPARATED BY 12 HOURS
     Route: 042
  6. ENALAPRILAT. [Concomitant]
     Active Substance: ENALAPRILAT
     Dosage: UNK
     Route: 042
  7. CEFEPIME [Suspect]
     Active Substance: CEFEPIME HYDROCHLORIDE
     Dosage: ON HOSPITAL DAY 2
  8. RIFAMPIN. [Suspect]
     Active Substance: RIFAMPIN
     Indication: STAPHYLOCOCCAL SEPSIS
     Dosage: UNK
  9. DIGOXIN. [Concomitant]
     Active Substance: DIGOXIN
     Dosage: UNK
     Route: 042
  10. TIGECYCLINE. [Suspect]
     Active Substance: TIGECYCLINE
     Dosage: ON HOSPITAL DAY 2
  11. CEFTRIAXONE. [Suspect]
     Active Substance: CEFTRIAXONE
     Indication: EVIDENCE BASED TREATMENT
     Dosage: 1 G, EVERY 24 HOURS
     Route: 042
  12. NAFCILLIN SODIUM. [Suspect]
     Active Substance: NAFCILLIN SODIUM
     Indication: STAPHYLOCOCCAL SEPSIS
     Dosage: UNK

REACTIONS (1)
  - Drug ineffective [Unknown]
